FAERS Safety Report 4635798-0 (Version None)
Quarter: 2005Q2

REPORT INFORMATION
  Report Type: 
  Country: None (occurrence: None)
  Receive Date: 20050414
  Receipt Date: 20050330
  Transmission Date: 20051028
  Serious: Yes (Hospitalization)
  Sender: FDA-Public Use
  Company Number: 2005UW04977

PATIENT
  Age: 81 Year
  Sex: Male

DRUGS (4)
  1. CRESTOR [Suspect]
     Dosage: 10 MG PO
     Route: 048
  2. DIURETICS [Suspect]
     Indication: CARDIAC FAILURE
  3. COREG [Concomitant]
  4. METOPROLOL TARTRATE [Concomitant]

REACTIONS (1)
  - RENAL FAILURE [None]
